FAERS Safety Report 12966606 (Version 1)
Quarter: 2016Q4

REPORT INFORMATION
  Report Type: Spontaneous
  Country: US (occurrence: US)
  Receive Date: 20161122
  Receipt Date: 20161122
  Transmission Date: 20170207
  Serious: Yes (Other)
  Sender: FDA-Public Use
  Company Number: US-ZYDUS-012745

PATIENT
  Age: 46 Year
  Sex: Female

DRUGS (3)
  1. METFORMIN [Suspect]
     Active Substance: METFORMIN HYDROCHLORIDE
     Indication: TYPE 2 DIABETES MELLITUS
     Route: 065
  2. METFORMIN [Suspect]
     Active Substance: METFORMIN HYDROCHLORIDE
     Indication: TYPE 2 DIABETES MELLITUS
     Route: 065
  3. METFORMIN [Suspect]
     Active Substance: METFORMIN HYDROCHLORIDE
     Indication: TYPE 2 DIABETES MELLITUS
     Route: 065

REACTIONS (6)
  - Hepatic fibrosis [Recovering/Resolving]
  - Cholestatic liver injury [Recovering/Resolving]
  - Hepatic cirrhosis [Recovering/Resolving]
  - Liver function test abnormal [Recovering/Resolving]
  - Arthralgia [Unknown]
  - Chronic hepatitis [Recovering/Resolving]

NARRATIVE: CASE EVENT DATE: 2008
